FAERS Safety Report 9261157 (Version 4)
Quarter: 2013Q4

REPORT INFORMATION
  Report Type: Spontaneous
  Country: JP (occurrence: JP)
  Receive Date: 20130429
  Receipt Date: 20131007
  Transmission Date: 20140711
  Serious: Yes (Hospitalization)
  Sender: FDA-Public Use
  Company Number: PHHY2013JP042059

PATIENT
  Age: 50 Year
  Sex: Male
  Weight: 54 kg

DRUGS (9)
  1. NEORAL [Suspect]
     Indication: NEPHROTIC SYNDROME
     Dosage: 50 MG, BID
     Route: 048
     Dates: start: 20130419
  2. SAMSCA [Concomitant]
     Indication: ELECTROLYTE SUBSTITUTION THERAPY
     Dosage: 15 MG
     Route: 048
     Dates: start: 20130419
  3. MICARDIS [Concomitant]
     Indication: HYPERTENSION
     Dosage: 80 MG
     Route: 048
     Dates: start: 20130419
  4. BAYASPIRIN [Concomitant]
     Indication: ANTIPLATELET THERAPY
     Dosage: 100 MG
     Route: 048
     Dates: start: 20130419
  5. FEBURIC [Concomitant]
     Indication: HYPERURICAEMIA
     Dosage: 10 MG
     Route: 048
     Dates: start: 20130419
  6. LANDEL [Concomitant]
     Indication: HYPERTENSION
     Dosage: 60 MG
     Route: 048
     Dates: start: 20130419
  7. ALDACTONE A [Concomitant]
     Indication: ELECTROLYTE SUBSTITUTION THERAPY
     Dosage: 50 MG
     Route: 048
     Dates: start: 20130420
  8. ASPARA POTASSIUM [Concomitant]
     Indication: ELECTROLYTE SUBSTITUTION THERAPY
     Dosage: 900 MG
     Route: 048
     Dates: start: 20130420
  9. CARDENALIN [Concomitant]
     Indication: HYPERTENSION
     Dosage: 4 MG
     Route: 048
     Dates: start: 20130419

REACTIONS (2)
  - Electrocardiogram ST-T change [Recovering/Resolving]
  - Electrocardiogram QT prolonged [Recovering/Resolving]
